FAERS Safety Report 7299199-1 (Version None)
Quarter: 2011Q1

REPORT INFORMATION
  Report Type: 
  Country: None (occurrence: None)
  Receive Date: 20110217
  Receipt Date: 20110209
  Transmission Date: 20110831
  Serious: Yes (Other)
  Sender: FDA-Public Use
  Company Number: US-PFIZER INC-2010118478

PATIENT
  Sex: Female
  Weight: 61.224 kg

DRUGS (5)
  1. PRISTIQ [Suspect]
     Indication: DEPRESSION
     Dosage: 50 MG, 1X/DAY
     Route: 048
     Dates: start: 20100915
  2. XANAX [Suspect]
     Indication: ANXIETY
     Dosage: UNK
  3. LORTAB [Suspect]
     Indication: MIGRAINE
     Dosage: UNK
  4. FLEXERIL [Suspect]
     Dosage: UNK
  5. FIORICET [Suspect]
     Indication: MIGRAINE
     Dosage: UNK

REACTIONS (8)
  - WEIGHT INCREASED [None]
  - BLADDER CANCER [None]
  - BREAST CANCER [None]
  - FEELING ABNORMAL [None]
  - EMOTIONAL DISORDER [None]
  - SUICIDAL BEHAVIOUR [None]
  - BREAST TENDERNESS [None]
  - DEPRESSION [None]
